FAERS Safety Report 4808942-X (Version None)
Quarter: 2005Q4

REPORT INFORMATION
  Report Type: 
  Country: None (occurrence: None)
  Receive Date: 20051021
  Receipt Date: 20050704
  Transmission Date: 20060501
  Serious: No
  Sender: FDA-Public Use
  Company Number: EWC050744832

PATIENT
  Age: 43 Year
  Sex: Male
  Weight: 58 kg

DRUGS (7)
  1. ZYPREXA [Suspect]
     Indication: BIPOLAR DISORDER
     Dosage: 10 MG/1 DAY
     Route: 048
     Dates: start: 20050614, end: 20050704
  2. ZYPREXA [Suspect]
     Indication: BORDERLINE PERSONALITY DISORDER
     Dosage: 10 MG/1 DAY
     Route: 048
     Dates: start: 20050614, end: 20050704
  3. DEPAKENE [Concomitant]
  4. SIPRALEXA                   (ESCITALOPRAM) [Concomitant]
  5. VALIUM [Concomitant]
  6. CAMPRAL [Concomitant]
  7. INDERAL [Concomitant]

REACTIONS (2)
  - EOSINOPHIL PERCENTAGE INCREASED [None]
  - EOSINOPHILIA [None]
